FAERS Safety Report 10921043 (Version 3)
Quarter: 2015Q3

REPORT INFORMATION
  Report Type: Spontaneous
  Country: US (occurrence: US)
  Receive Date: 20150317
  Receipt Date: 20150706
  Transmission Date: 20151125
  Serious: No
  Sender: FDA-Public Use
  Company Number: US-009507513-1503USA007817

PATIENT
  Sex: Female

DRUGS (1)
  1. GRASTEK [Suspect]
     Active Substance: PHLEUM PRATENSE POLLEN
     Indication: SEASONAL ALLERGY
     Dosage: DOSE/FREQUENCY: 2800 BIOEQUIVALENT ALLERGY UNITS, DAILY
     Route: 060
     Dates: start: 20150313

REACTIONS (5)
  - Tongue pruritus [Unknown]
  - Tongue blistering [Unknown]
  - Swollen tongue [Unknown]
  - Ear pruritus [Unknown]
  - Throat irritation [Unknown]

NARRATIVE: CASE EVENT DATE: 20150313
